FAERS Safety Report 8632321 (Version 2)
Quarter: 2012Q4

REPORT INFORMATION
  Report Type: 
  Country: US (occurrence: US)
  Receive Date: 20120625
  Receipt Date: 20121119
  Transmission Date: 20130627
  Serious: Yes (Hospitalization)
  Sender: FDA-Public Use
  Company Number: US-BAYER-2012-060519

PATIENT
  Age: 34 Year
  Sex: Female
  Weight: 114.74 kg

DRUGS (12)
  1. YAZ [Suspect]
     Indication: ACNE
     Dosage: UNK
     Dates: start: 200606, end: 20110421
  2. YAZ [Suspect]
     Indication: PREMENSTRUAL DYSPHORIC DISORDER
  3. YAZ [Suspect]
     Indication: PREMENSTRUAL SYNDROME
  4. ANTIBIOTICS [Concomitant]
  5. NSAID^S [Concomitant]
  6. CIPRODEX [CIPROFLOXACIN,DEXAMETHASONE] [Concomitant]
     Dosage: 7.5 ml, UNK
  7. CEFPROZIL [Concomitant]
     Dosage: 500 mg, UNK
  8. PREDNISONE [Concomitant]
     Dosage: 10 mg, UNK
  9. HYDROCODONE/ACETAMINOPHEN [Concomitant]
     Dosage: 5mg/500mg
  10. ZOLOFT [Concomitant]
  11. XANAX [Concomitant]
  12. NAPROXEN [Concomitant]

REACTIONS (5)
  - Deep vein thrombosis [None]
  - Injury [None]
  - Pain [None]
  - Oedema peripheral [None]
  - Pain in extremity [None]
